FAERS Safety Report 9694526 (Version 4)
Quarter: 2014Q1

REPORT INFORMATION
  Report Type: Report from Study
  Country: JP (occurrence: JP)
  Receive Date: 20131118
  Receipt Date: 20140324
  Transmission Date: 20141002
  Serious: Yes (Life-Threatening, Other)
  Sender: FDA-Public Use
  Company Number: JP-TAKEDA-2013TJP002880

PATIENT
  Age: 60 Year
  Sex: Female
  Weight: 72.7 kg

DRUGS (10)
  1. ALOGLIPTIN [Suspect]
     Indication: TYPE 2 DIABETES MELLITUS
     Dosage: 25 MG, QD
     Route: 048
     Dates: start: 20120704
  2. BASEN [Concomitant]
     Indication: TYPE 2 DIABETES MELLITUS
     Dosage: 0.9 MG, 1 DAYS
     Route: 048
     Dates: start: 20110311
  3. AMARYL [Concomitant]
     Indication: TYPE 2 DIABETES MELLITUS
     Dosage: 1 MG, DAYS
     Route: 048
     Dates: start: 20110311
  4. NELBIS [Concomitant]
     Indication: TYPE 2 DIABETES MELLITUS
     Dosage: 500 MG, 1 DAYS
     Route: 048
     Dates: start: 20111123
  5. CO DIO COMBINATION [Concomitant]
     Indication: HYPERTENSION
     Dosage: 1 DF, 1 DAYS
     Route: 048
     Dates: start: 20120118
  6. ALOSITOL [Concomitant]
     Indication: HYPERURICAEMIA
     Dosage: 100 MG, 1 DAYS
     Route: 048
     Dates: start: 20110311
  7. BAYASPIRIN [Concomitant]
     Indication: ANTIPLATELET THERAPY
     Dosage: 100 MG, 1 DAYS
     Route: 048
     Dates: start: 20110311
  8. PARIET [Concomitant]
     Indication: PROPHYLAXIS AGAINST GASTROINTESTINAL ULCER
     Dosage: 10 MG,1 DAYS
     Route: 048
     Dates: start: 20110311
  9. LIPITOR [Concomitant]
     Indication: HYPERLIPIDAEMIA
     Dosage: 10 MG, 1 DAYS
     Route: 048
     Dates: start: 20110311
  10. ADALAT CR [Concomitant]
     Indication: HYPERTENSION
     Dosage: 40 MG, 1 DAYS
     Route: 048
     Dates: start: 20110803

REACTIONS (2)
  - Breast cancer [Recovered/Resolved]
  - Gamma-glutamyltransferase increased [Not Recovered/Not Resolved]
